FAERS Safety Report 23781994 (Version 2)
Quarter: 2024Q2

REPORT INFORMATION
  Report Type: Spontaneous
  Country: PH (occurrence: PH)
  Receive Date: 20240425
  Receipt Date: 20240520
  Transmission Date: 20240716
  Serious: Yes (Life-Threatening, Hospitalization)
  Sender: FDA-Public Use
  Company Number: PH-TEVA-VS-3186686

PATIENT
  Age: 38 Year
  Sex: Female

DRUGS (2)
  1. LETROZOLE [Suspect]
     Active Substance: LETROZOLE
     Indication: Assisted fertilisation
     Route: 065
  2. CETRORELIX [Suspect]
     Active Substance: CETRORELIX
     Indication: Assisted fertilisation
     Route: 065

REACTIONS (2)
  - Ovarian hyperstimulation syndrome [Recovered/Resolved]
  - Acute kidney injury [Recovered/Resolved]
